FAERS Safety Report 8237751-7 (Version None)
Quarter: 2012Q1

REPORT INFORMATION
  Report Type: 
  Country: None (occurrence: None)
  Receive Date: 20120326
  Receipt Date: 20120319
  Transmission Date: 20120608
  Serious: Yes (Hospitalization)
  Sender: FDA-Public Use
  Company Number: 2012SP015175

PATIENT
  Sex: Female

DRUGS (1)
  1. NUVARING [Suspect]
     Indication: MATERNAL EXPOSURE DURING PREGNANCY
     Dosage: TRPL
     Route: 064

REACTIONS (8)
  - CAESAREAN SECTION [None]
  - NEONATAL RESPIRATORY DISTRESS SYNDROME [None]
  - MATERNAL DRUGS AFFECTING FOETUS [None]
  - OLIGOHYDRAMNIOS [None]
  - ORAL NEOPLASM [None]
  - PREMATURE BABY [None]
  - BREECH PRESENTATION [None]
  - SEPSIS NEONATAL [None]
